FAERS Safety Report 8887379 (Version 1)
Quarter: 2012Q4

REPORT INFORMATION
  Report Type: 
  Country: US (occurrence: US)
  Receive Date: 20121105
  Receipt Date: 20121105
  Transmission Date: 20130627
  Serious: Yes (Other)
  Sender: FDA-Public Use
  Company Number: US-009507513-1211USA000554

PATIENT

DRUGS (2)
  1. SIMVASTATIN [Suspect]
     Route: 048
  2. METFORMIN [Suspect]

REACTIONS (1)
  - Pancreatitis [Unknown]
